FAERS Safety Report 20646390 (Version 1)
Quarter: 2022Q1

REPORT INFORMATION
  Report Type: Spontaneous
  Country: JP (occurrence: JP)
  Receive Date: 20220329
  Receipt Date: 20220329
  Transmission Date: 20220424
  Serious: Yes (Other)
  Sender: FDA-Public Use
  Company Number: JP-TAKEDA-2021TJP125842

PATIENT
  Age: 69 Year
  Sex: Male
  Weight: 76.1 kg

DRUGS (6)
  1. VECTIBIX [Suspect]
     Active Substance: PANITUMUMAB
     Indication: Rectal cancer stage IV
     Dosage: 420 MILLIGRAM, Q2WK
     Route: 041
     Dates: start: 20210727, end: 20211116
  2. LEVOLEUCOVORIN CALCIUM [Suspect]
     Active Substance: LEVOLEUCOVORIN CALCIUM
     Indication: Rectal cancer stage IV
     Dosage: 376 MILLIGRAM, Q2WEEKS
     Route: 065
     Dates: start: 20210727
  3. OXALIPLATIN [Suspect]
     Active Substance: OXALIPLATIN
     Indication: Rectal cancer stage IV
     Dosage: 160 MILLIGRAM, Q2WEEKS
     Route: 065
     Dates: start: 20210727, end: 20211130
  4. FLUOROURACIL [Suspect]
     Active Substance: FLUOROURACIL
     Indication: Rectal cancer stage IV
     Dosage: 5266 MILLIGRAM, Q2WEEKS
     Route: 065
     Dates: start: 20210727
  5. GRANISETRON HYDROCHLORIDE [Concomitant]
     Active Substance: GRANISETRON HYDROCHLORIDE
     Indication: Prophylaxis of nausea and vomiting
     Dosage: 1 MILLIGRAM, Q2WEEKS
     Route: 042
     Dates: start: 20210727
  6. DEXAMETHASONE SODIUM PHOSPHATE [Concomitant]
     Active Substance: DEXAMETHASONE SODIUM PHOSPHATE
     Indication: Prophylaxis of nausea and vomiting
     Dosage: 9.9 MILLIGRAM, Q2WEEKS
     Route: 065
     Dates: start: 20210727

REACTIONS (16)
  - Neuropathy peripheral [Unknown]
  - Neutrophil count decreased [Recovered/Resolved]
  - Hypomagnesaemia [Recovered/Resolved]
  - Hypokalaemia [Recovered/Resolved]
  - Blood albumin decreased [Unknown]
  - Taste disorder [Unknown]
  - Skin disorder [Recovered/Resolved]
  - Malaise [Unknown]
  - Platelet count decreased [Unknown]
  - Haemoglobin decreased [Unknown]
  - Hypertension [Unknown]
  - Anaemia [Unknown]
  - White blood cell count decreased [Unknown]
  - Paronychia [Recovered/Resolved]
  - Pruritus [Unknown]
  - Decreased appetite [Unknown]

NARRATIVE: CASE EVENT DATE: 20210907
